FAERS Safety Report 7137203-1 (Version None)
Quarter: 2010Q4

REPORT INFORMATION
  Report Type: 
  Country: None (occurrence: None)
  Receive Date: 20101206
  Receipt Date: 20090203
  Transmission Date: 20110411
  Serious: Yes (Death)
  Sender: FDA-Public Use
  Company Number: US-ACTELION-A-US2007-17500

PATIENT

DRUGS (3)
  1. ILOPROST INHALATION SOLUTION UNKNOWN US [Suspect]
     Indication: PULMONARY ARTERIAL HYPERTENSION
     Dosage: UNK UG, UNK
     Route: 055
     Dates: start: 20070614
  2. ILOPROST INHALATION SOLUTION UNKNOWN US [Suspect]
     Dosage: UNK UG, UNK
     Route: 055
     Dates: start: 20071126
  3. REVATIO [Concomitant]

REACTIONS (5)
  - DEATH [None]
  - DYSPNOEA [None]
  - MUSCLE CONTRACTIONS INVOLUNTARY [None]
  - MUSCLE SPASMS [None]
  - OEDEMA PERIPHERAL [None]
